FAERS Safety Report 7325312-3 (Version None)
Quarter: 2011Q1

REPORT INFORMATION
  Report Type: 
  Country: None (occurrence: None)
  Receive Date: 20110302
  Receipt Date: 20100602
  Transmission Date: 20110831
  Serious: Yes (Hospitalization, Other)
  Sender: FDA-Public Use
  Company Number: US-BAYER-200943370NA

PATIENT
  Sex: Female
  Weight: 105.67 kg

DRUGS (6)
  1. YAZ [Suspect]
     Indication: MENORRHAGIA
  2. ASCORBIC ACID [Concomitant]
     Indication: MEDICAL DIET
     Dosage: UNK
     Dates: start: 20040101
  3. PROAIR HFA [Concomitant]
     Indication: ASTHMA
     Dosage: UNK
     Dates: end: 20080101
  4. YAZ [Suspect]
     Indication: MENSTRUATION IRREGULAR
     Dates: start: 20080106, end: 20080128
  5. MULTI-VITAMIN [Concomitant]
     Indication: MEDICAL DIET
     Dosage: UNK
     Dates: start: 20080106, end: 20080128
  6. IBUPROFEN [Concomitant]
     Dosage: UNK
     Dates: end: 20080101

REACTIONS (4)
  - DEEP VEIN THROMBOSIS [None]
  - INJURY [None]
  - PULMONARY INFARCTION [None]
  - PULMONARY EMBOLISM [None]
